FAERS Safety Report 9668989 (Version 1)
Quarter: 2013Q4

REPORT INFORMATION
  Report Type: Spontaneous
  Country: US (occurrence: US)
  Receive Date: 20131105
  Receipt Date: 20131105
  Transmission Date: 20140711
  Serious: No
  Sender: FDA-Public Use
  Company Number: US-PFIZER INC-2013312331

PATIENT
  Age: 82 Year
  Sex: Female
  Weight: 58.05 kg

DRUGS (3)
  1. PREMARIN [Suspect]
     Indication: VULVOVAGINAL DRYNESS
     Dosage: 0.5 G, 2X/WEEK
     Route: 067
  2. PREMARIN [Suspect]
     Dosage: 0.5 G, WEEKLY
     Route: 067
  3. PREMARIN [Suspect]
     Dosage: 0.5 G, UNK
     Route: 067

REACTIONS (3)
  - Body height decreased [Unknown]
  - Malaise [Unknown]
  - Drug dose omission [Unknown]
